FAERS Safety Report 4409136-2 (Version None)
Quarter: 2004Q2

REPORT INFORMATION
  Report Type: 
  Country: None (occurrence: None)
  Receive Date: 20040618
  Receipt Date: 20040317
  Transmission Date: 20050107
  Serious: No
  Sender: FDA-Public Use
  Company Number: US-JNJFOC-20040304531

PATIENT
  Age: 19 Year
  Sex: Female
  Weight: 83.9154 kg

DRUGS (2)
  1. ORTHO EVRA [Suspect]
     Indication: CONTRACEPTION
     Dosage: 1 DOSE (S), TRANSDERMAL
     Route: 062
     Dates: start: 20040305, end: 20040310
  2. ZYRTEC [Concomitant]

REACTIONS (1)
  - ACNE [None]
